FAERS Safety Report 10908678 (Version 1)
Quarter: 2015Q1

REPORT INFORMATION
  Report Type: Spontaneous
  Country: US (occurrence: None)
  Receive Date: 20150310
  Receipt Date: 20150310
  Transmission Date: 20150721
  Serious: Yes (Other)
  Sender: FDA-Public Use
  Company Number: None

PATIENT
  Age: 46 Year
  Sex: Male
  Weight: 145.15 kg

DRUGS (8)
  1. ATORVASTIN [Concomitant]
     Active Substance: ATORVASTATIN
  2. PRILOSEC [Concomitant]
     Active Substance: OMEPRAZOLE MAGNESIUM
  3. BENAZIPROL [Concomitant]
  4. METOPROLOL [Concomitant]
     Active Substance: METOPROLOL
  5. METFORMIN [Concomitant]
     Active Substance: METFORMIN HYDROCHLORIDE
  6. SEPTOCAINE (ARTCAINE HCI) SEPTODONT, INC [Suspect]
     Active Substance: ARTICAINE HYDROCHLORIDE\EPINEPHRINE BITARTRATE
     Indication: ANAESTHESIA
     Dosage: 3 CARPULES
  7. FLAXSEED [Concomitant]
     Active Substance: FLAX SEED
  8. ASPIRIN. [Concomitant]
     Active Substance: ASPIRIN

REACTIONS (3)
  - Hypoaesthesia [None]
  - Ear disorder [None]
  - Paraesthesia [None]

NARRATIVE: CASE EVENT DATE: 20150121
